FAERS Safety Report 8240502-3 (Version None)
Quarter: 2012Q1

REPORT INFORMATION
  Report Type: 
  Country: None (occurrence: None)
  Receive Date: 20120328
  Receipt Date: 20120319
  Transmission Date: 20120608
  Serious: Yes (Hospitalization, Other)
  Sender: FDA-Public Use
  Company Number: AU-ROCHE-1051131

PATIENT
  Sex: Female

DRUGS (1)
  1. XELODA [Suspect]
     Indication: COLON CANCER STAGE III

REACTIONS (14)
  - EYE DISORDER [None]
  - SKIN EXFOLIATION [None]
  - WEIGHT DECREASED [None]
  - LIP BLISTER [None]
  - DIARRHOEA [None]
  - MOUTH ULCERATION [None]
  - NASAL DISORDER [None]
  - BLISTER [None]
  - SKIN BURNING SENSATION [None]
  - DECREASED APPETITE [None]
  - HALLUCINATION [None]
  - FUNCTIONAL GASTROINTESTINAL DISORDER [None]
  - ALOPECIA [None]
  - VOMITING [None]
